FAERS Safety Report 17030623 (Version 1)
Quarter: 2019Q4

REPORT INFORMATION
  Report Type: Spontaneous
  Country: US (occurrence: US)
  Receive Date: 20191011
  Receipt Date: 20191011
  Transmission Date: 20200122
  Serious: Yes (Other)
  Sender: FDA-Public Use
  Company Number: None

PATIENT
  Age: 56 Year
  Sex: Female

DRUGS (21)
  1. NARCAN SASAL SPRAY [Concomitant]
  2. ZOFRAN [Concomitant]
     Active Substance: ONDANSETRON HYDROCHLORIDE
  3. OPSUMIT [Suspect]
     Active Substance: MACITENTAN
     Indication: PULMONARY ARTERIAL HYPERTENSION
     Route: 048
     Dates: start: 201511
  4. LORAZEPAM. [Concomitant]
     Active Substance: LORAZEPAM
  5. CITALOPRAM [Concomitant]
     Active Substance: CITALOPRAM HYDROBROMIDE
  6. TYLENOL-CODEINE ORAL SOLN [Concomitant]
  7. VELETRI [Concomitant]
     Active Substance: EPOPROSTENOL
  8. WARFARIN [Concomitant]
     Active Substance: WARFARIN
  9. GLIPIZIDE. [Concomitant]
     Active Substance: GLIPIZIDE
  10. ADVAIR DISKUS [Concomitant]
     Active Substance: FLUTICASONE PROPIONATE\SALMETEROL XINAFOATE
  11. VENTOLIN HFA [Concomitant]
     Active Substance: ALBUTEROL SULFATE
  12. SPIRONOLACTONE. [Concomitant]
     Active Substance: SPIRONOLACTONE
  13. DIGOXIN. [Concomitant]
     Active Substance: DIGOXIN
  14. BENZONATATE. [Concomitant]
     Active Substance: BENZONATATE
  15. FLONASE [Concomitant]
     Active Substance: FLUTICASONE PROPIONATE
  16. TORSEMIDE. [Concomitant]
     Active Substance: TORSEMIDE
  17. MONTELUKAST [Concomitant]
     Active Substance: MONTELUKAST SODIUM
  18. METFORMIN [Concomitant]
     Active Substance: METFORMIN HYDROCHLORIDE
  19. INSULIN NPH HUMAN [Concomitant]
  20. NORCO [Concomitant]
     Active Substance: ACETAMINOPHEN\HYDROCODONE BITARTRATE
  21. PREGABALIN. [Concomitant]
     Active Substance: PREGABALIN

REACTIONS (4)
  - Fall [None]
  - Eye injury [None]
  - Headache [None]
  - Skin laceration [None]

NARRATIVE: CASE EVENT DATE: 20190930
